FAERS Safety Report 11643231 (Version 2)
Quarter: 2016Q3

REPORT INFORMATION
  Report Type: Report from Study
  Country: BR (occurrence: BR)
  Receive Date: 20151020
  Receipt Date: 20160711
  Transmission Date: 20161109
  Serious: Yes (Disabling, Other)
  Sender: FDA-Public Use
  Company Number: BR-ABBVIE-15K-020-1482260-00

PATIENT
  Age: 61 Year
  Sex: Female
  Weight: 41 kg

DRUGS (12)
  1. HUMIRA [Suspect]
     Active Substance: ADALIMUMAB
     Indication: RHEUMATOID ARTHRITIS
     Route: 058
     Dates: start: 20140926
  2. NIMESULID [Concomitant]
     Active Substance: NIMESULIDE
     Route: 048
  3. METHOTREXATE. [Concomitant]
     Active Substance: METHOTREXATE
     Route: 048
  4. NIMESULID [Concomitant]
     Active Substance: NIMESULIDE
     Indication: PAIN
     Route: 048
     Dates: start: 2005
  5. METHOTREXATE. [Concomitant]
     Active Substance: METHOTREXATE
     Indication: RHEUMATOID ARTHRITIS
     Route: 048
  6. METHOTREXATE. [Concomitant]
     Active Substance: METHOTREXATE
     Route: 048
  7. PANTOPRAZOLE [Concomitant]
     Active Substance: PANTOPRAZOLE SODIUM
     Indication: GASTRIC DISORDER
     Route: 048
     Dates: start: 201606
  8. PANTOPRAZOLE [Concomitant]
     Active Substance: PANTOPRAZOLE SODIUM
     Indication: PROPHYLAXIS
  9. MAXSULID [Concomitant]
     Active Substance: NIMESULIDE
     Indication: ANTIINFLAMMATORY THERAPY
     Route: 048
     Dates: start: 20160629
  10. FAMOTIDINE. [Concomitant]
     Active Substance: FAMOTIDINE
     Indication: PAIN
     Route: 048
     Dates: start: 2005
  11. PREDNISONE. [Concomitant]
     Active Substance: PREDNISONE
     Indication: PAIN
     Route: 048
     Dates: start: 2005
  12. METHOTREXATE. [Concomitant]
     Active Substance: METHOTREXATE
     Route: 048

REACTIONS (6)
  - Ulcerative keratitis [Recovered/Resolved]
  - Inflammation [Unknown]
  - Eye injury [Recovering/Resolving]
  - Blindness unilateral [Recovering/Resolving]
  - Eye pain [Recovering/Resolving]
  - Ocular hyperaemia [Recovering/Resolving]

NARRATIVE: CASE EVENT DATE: 201506
